FAERS Safety Report 5249161-5 (Version None)
Quarter: 2007Q1

REPORT INFORMATION
  Report Type: 
  Country: None (occurrence: None)
  Receive Date: 20070223
  Receipt Date: 20070213
  Transmission Date: 20070707
  Serious: Yes (Hospitalization)
  Sender: FDA-Public Use
  Company Number: 2007-00370

PATIENT
  Age: 65 Year
  Sex: Male
  Weight: 68 kg

DRUGS (3)
  1. VELCADE [Suspect]
     Indication: PLASMACYTOMA
     Dosage: 2.30 MG, INTRAVENOUS
     Route: 042
     Dates: start: 20070116, end: 20070126
  2. DOXORUBICIN HCL [Suspect]
     Indication: PLASMACYTOMA
     Dosage: 16.00 MG, INTRAVENOUS
     Route: 042
     Dates: start: 20070116, end: 20070119
  3. DEXAMETHASONE [Suspect]
     Indication: PLASMACYTOMA
     Dosage: 40.00 MG, ORAL
     Route: 048
     Dates: start: 20070116, end: 20070204

REACTIONS (5)
  - APNOEA [None]
  - ASTHENIA [None]
  - CHEST PAIN [None]
  - PYREXIA [None]
  - SUPRAVENTRICULAR TACHYCARDIA [None]
